FAERS Safety Report 11592631 (Version 2)
Quarter: 2015Q4

REPORT INFORMATION
  Report Type: Spontaneous
  Country: JP (occurrence: JP)
  Receive Date: 20151005
  Receipt Date: 20151209
  Transmission Date: 20160304
  Serious: Yes (Other)
  Sender: FDA-Public Use
  Company Number: JP-BAYER-2015-247642

PATIENT
  Age: 35 Year
  Sex: Female
  Weight: 51.97 kg

DRUGS (2)
  1. MIRENA [Suspect]
     Active Substance: LEVONORGESTREL
     Indication: ADENOMYOSIS
     Dosage: 20 MCG/24HR, CONT
     Route: 015
     Dates: start: 20130723, end: 20151027
  2. MIRENA [Suspect]
     Active Substance: LEVONORGESTREL
     Indication: UTERINE LEIOMYOMA
     Dosage: 20 MCG/24HR, CONT
     Route: 015
     Dates: start: 20080411, end: 20130515

REACTIONS (4)
  - Invasive ductal breast carcinoma [Not Recovered/Not Resolved]
  - Off label use of device [None]
  - Off label use of device [None]
  - Cervical dysplasia [None]

NARRATIVE: CASE EVENT DATE: 20080411
